FAERS Safety Report 14496726 (Version 3)
Quarter: 2018Q2

REPORT INFORMATION
  Report Type: Report from Study
  Country: US (occurrence: US)
  Receive Date: 20180207
  Receipt Date: 20180427
  Transmission Date: 20180711
  Serious: Yes (Other)
  Sender: FDA-Public Use
  Company Number: US-GILEAD-2018-0317927

PATIENT
  Age: 46 Year
  Sex: Female

DRUGS (3)
  1. AMBRISENTAN [Suspect]
     Active Substance: AMBRISENTAN
     Indication: PRODUCT USED FOR UNKNOWN INDICATION
     Dosage: 5 MG, QD
     Route: 065
     Dates: start: 20170505
  2. ADEMPAS [Concomitant]
     Active Substance: RIOCIGUAT
  3. OXYGEN. [Concomitant]
     Active Substance: OXYGEN

REACTIONS (6)
  - Menorrhagia [Not Recovered/Not Resolved]
  - Malaise [Not Recovered/Not Resolved]
  - Blood iron decreased [Not Recovered/Not Resolved]
  - Oxygen therapy [Not Recovered/Not Resolved]
  - Anaemia [Not Recovered/Not Resolved]
  - Central venous catheterisation [Unknown]

NARRATIVE: CASE EVENT DATE: 20180123
